FAERS Safety Report 9088110 (Version 2)
Quarter: 2013Q2

REPORT INFORMATION
  Report Type: Report from Study
  Country: AU (occurrence: AU)
  Receive Date: 20130201
  Receipt Date: 20130522
  Transmission Date: 20140414
  Serious: No
  Sender: FDA-Public Use
  Company Number: AU-ROCHE-1186621

PATIENT
  Sex: Female

DRUGS (3)
  1. ACTEMRA [Suspect]
     Indication: RHEUMATOID ARTHRITIS
     Route: 042
     Dates: start: 20120522, end: 20121026
  2. PREDNISONE [Concomitant]
     Indication: RHEUMATOID ARTHRITIS
  3. CELEBREX [Concomitant]
     Indication: RHEUMATOID ARTHRITIS

REACTIONS (1)
  - Hepatic function abnormal [Not Recovered/Not Resolved]
